FAERS Safety Report 8916080 (Version 4)
Quarter: 2012Q4

REPORT INFORMATION
  Report Type: 
  Country: US (occurrence: US)
  Receive Date: 20121119
  Receipt Date: 20121210
  Transmission Date: 20130627
  Serious: Yes (Hospitalization)
  Sender: FDA-Public Use
  Company Number: US-GILEAD-2012-0064789

PATIENT
  Age: 57 Year
  Sex: Male

DRUGS (4)
  1. LETAIRIS [Suspect]
     Indication: COR PULMONALE CHRONIC
     Dosage: 10 mg, QD
     Route: 048
     Dates: start: 20111201
  2. LETAIRIS [Suspect]
     Indication: HEPATITIS C
  3. LETAIRIS [Suspect]
     Indication: PORTOPULMONARY HYPERTENSION
  4. REMODULIN [Concomitant]

REACTIONS (2)
  - Lung transplant [Unknown]
  - Liver transplant [Unknown]
